FAERS Safety Report 6526843-6 (Version None)
Quarter: 2010Q1

REPORT INFORMATION
  Report Type: 
  Country: None (occurrence: None)
  Receive Date: 20100104
  Receipt Date: 20100104
  Transmission Date: 20100710
  Serious: No
  Sender: FDA-Public Use
  Company Number: None

PATIENT
  Age: 22 Year
  Sex: Male
  Weight: 120.2032 kg

DRUGS (1)
  1. AMBIEN [Suspect]
     Dosage: 10MG, 2 PILLS NIGHTLY PO
     Route: 048
     Dates: start: 20090501, end: 20090601

REACTIONS (3)
  - AMNESIA [None]
  - HALLUCINATION [None]
  - SOMNAMBULISM [None]
